FAERS Safety Report 21955607 (Version 1)
Quarter: 2023Q1

REPORT INFORMATION
  Report Type: Spontaneous
  Country: NL (occurrence: NL)
  Receive Date: 20230206
  Receipt Date: 20230206
  Transmission Date: 20230417
  Serious: Yes (Disabling)
  Sender: FDA-Public Use
  Company Number: NL-LRB-00863536

PATIENT
  Sex: Male
  Weight: 100 kg

DRUGS (1)
  1. LORAZEPAM [Suspect]
     Active Substance: LORAZEPAM
     Indication: Anxiety
     Dosage: 1 DOSAGE FORM (TABLET, 1 MG (MILLIGRAM),
     Route: 065
     Dates: start: 19930124

REACTIONS (1)
  - Torticollis [Not Recovered/Not Resolved]
